FAERS Safety Report 6188138-2 (Version None)
Quarter: 2009Q2

REPORT INFORMATION
  Report Type: 
  Country: None (occurrence: None)
  Receive Date: 20090513
  Receipt Date: 20080318
  Transmission Date: 20091009
  Serious: No
  Sender: FDA-Public Use
  Company Number: A0721239A

PATIENT
  Age: 86 Year
  Sex: Female
  Weight: 59.88 kg

DRUGS (3)
  1. DYNACIRC CR [Suspect]
     Dosage: 10MG PER DAY
     Route: 048
     Dates: start: 20080301
  2. MICARDIS [Concomitant]
     Indication: DRUG USE FOR UNKNOWN INDICATION
  3. PERCOCET [Concomitant]
     Indication: DRUG USE FOR UNKNOWN INDICATION

REACTIONS (1)
  - VISION BLURRED [None]
